FAERS Safety Report 18351161 (Version 1)
Quarter: 2020Q4

REPORT INFORMATION
  Report Type: Spontaneous
  Country: CN (occurrence: CN)
  Receive Date: 20201007
  Receipt Date: 20201007
  Transmission Date: 20210114
  Serious: Yes (Hospitalization, Other)
  Sender: FDA-Public Use
  Company Number: CN-INSUD PHARMA-2009CN00222

PATIENT

DRUGS (5)
  1. ESTRASORB [Suspect]
     Active Substance: ESTRADIOL HEMIHYDRATE
     Indication: MENOPAUSAL SYMPTOMS
     Dosage: CONTINUOUS INTRAMUSCULAR INJECTION FOR LONGER THAN 5 YEARS
     Route: 030
  2. ANDROGENS [Suspect]
     Active Substance: UNSPECIFIED INGREDIENT
     Indication: DYSFUNCTIONAL UTERINE BLEEDING
  3. ANDROGENS [Suspect]
     Active Substance: UNSPECIFIED INGREDIENT
     Indication: ADENOMYOSIS
     Dosage: CONTINUOUS INTRAMUSCULAR INJECTIONS FOR LONGER THAN 5 YEARS
     Route: 030
  4. PROGESTERONE. [Suspect]
     Active Substance: PROGESTERONE
     Indication: DYSFUNCTIONAL UTERINE BLEEDING
  5. PROGESTERONE. [Suspect]
     Active Substance: PROGESTERONE
     Indication: ADENOMYOSIS
     Dosage: CONTINUOUS INTRAMUSCULAR INJECTIONS FOR LONGER THAN 5 YEARS
     Route: 030

REACTIONS (11)
  - Invasive ductal breast carcinoma [Unknown]
  - Breast mass [Unknown]
  - Bloody discharge [Unknown]
  - Nipple neoplasm [Unknown]
  - Lymphadenopathy [Unknown]
  - Thyroid cancer [Unknown]
  - Thyroid mass [Unknown]
  - Skin lesion [Unknown]
  - Breast discharge [Unknown]
  - Metastases to lymph nodes [Unknown]
  - Uterine leiomyoma [Unknown]
